FAERS Safety Report 5969002-8 (Version None)
Quarter: 2008Q4

REPORT INFORMATION
  Report Type: 
  Country: None (occurrence: None)
  Receive Date: 20081126
  Receipt Date: 20081117
  Transmission Date: 20090506
  Serious: No
  Sender: FDA-Public Use
  Company Number: US-ELI_LILLY_AND_COMPANY-US200809005184

PATIENT
  Age: 43 Year
  Sex: Female
  Weight: 64.399 kg

DRUGS (4)
  1. CYMBALTA [Suspect]
     Indication: DEPRESSION
     Dosage: 30 MG, UNK
     Dates: start: 20080301, end: 20080701
  2. CYMBALTA [Suspect]
     Dosage: 60 MG, UNK
     Dates: start: 20080701, end: 20080901
  3. CONTRACEPTIVES NOS [Concomitant]
     Indication: CONTRACEPTION
  4. MIDRIN [Concomitant]
     Indication: HEADACHE

REACTIONS (8)
  - ALANINE AMINOTRANSFERASE INCREASED [None]
  - ANXIETY [None]
  - DEPRESSION [None]
  - HYPERBILIRUBINAEMIA [None]
  - LIVER FUNCTION TEST ABNORMAL [None]
  - NAUSEA [None]
  - PALPITATIONS [None]
  - VENTRICULAR EXTRASYSTOLES [None]
